FAERS Safety Report 25166818 (Version 1)
Quarter: 2025Q2

REPORT INFORMATION
  Report Type: Spontaneous
  Country: DE (occurrence: DE)
  Receive Date: 20250407
  Receipt Date: 20250407
  Transmission Date: 20250716
  Serious: Yes (Other)
  Sender: AMPHASTAR
  Company Number: DE-Amphastar Pharmaceuticals, Inc.-2174331

PATIENT
  Age: 5 Year
  Sex: Male

DRUGS (1)
  1. BAQSIMI [Suspect]
     Active Substance: GLUCAGON
     Indication: Blood glucose decreased
     Dates: start: 20250316

REACTIONS (3)
  - Drug ineffective [Not Recovered/Not Resolved]
  - Enuresis [Not Recovered/Not Resolved]
  - Eating disorder symptom [Not Recovered/Not Resolved]

NARRATIVE: CASE EVENT DATE: 20250316
